FAERS Safety Report 15857329 (Version 1)
Quarter: 2019Q1

REPORT INFORMATION
  Report Type: Spontaneous
  Country: US (occurrence: US)
  Receive Date: 20190123
  Receipt Date: 20190123
  Transmission Date: 20190417
  Serious: No
  Sender: FDA-Public Use
  Company Number: US-MYLANLABS-2019M1000244

PATIENT

DRUGS (1)
  1. ALBUTEROL TABLETS, USP [Suspect]
     Active Substance: ALBUTEROL
     Indication: RESPIRATION ABNORMAL
     Route: 048

REACTIONS (2)
  - Product odour abnormal [Unknown]
  - Bladder pain [Not Recovered/Not Resolved]
